FAERS Safety Report 5177174-0 (Version None)
Quarter: 2006Q4

REPORT INFORMATION
  Report Type: 
  Country: None (occurrence: None)
  Receive Date: 20061218
  Receipt Date: 20061207
  Transmission Date: 20070319
  Serious: Yes (Hospitalization, Other)
  Sender: FDA-Public Use
  Company Number: JP-BRISTOL-MYERS SQUIBB COMPANY-13606124

PATIENT
  Age: 29 Year
  Sex: Male

DRUGS (8)
  1. REYATAZ [Suspect]
     Indication: HIV INFECTION
     Route: 048
     Dates: start: 20040615, end: 20050413
  2. EPIVIR [Suspect]
     Indication: HIV INFECTION
     Dosage: DOSAGE CHANGED TO 150 MG TWICE DAILY ON 14-APR-2005.
     Route: 048
     Dates: start: 19960528
  3. NORVIR [Suspect]
     Indication: HIV INFECTION
     Route: 048
     Dates: start: 20040615, end: 20050413
  4. VIREAD [Suspect]
     Indication: HIV INFECTION
     Route: 048
     Dates: start: 20040615, end: 20050413
  5. ZERIT [Concomitant]
     Route: 048
     Dates: start: 20050414
  6. VIRACEPT [Concomitant]
     Route: 048
     Dates: start: 20050414
  7. LIPANTIL [Concomitant]
     Route: 048
     Dates: start: 20010123, end: 20050413
  8. RECOMBINATE [Concomitant]
     Route: 042
     Dates: start: 19981101

REACTIONS (1)
  - LYMPHOMA [None]
